FAERS Safety Report 7031012-X (Version None)
Quarter: 2010Q4

REPORT INFORMATION
  Report Type: 
  Country: None (occurrence: None)
  Receive Date: 20101006
  Receipt Date: 20100830
  Transmission Date: 20110411
  Serious: No
  Sender: FDA-Public Use
  Company Number: US-BRISTOL-MYERS SQUIBB COMPANY-15261043

PATIENT
  Age: 36 Year
  Sex: Female
  Weight: 69 kg

DRUGS (1)
  1. KENALOG-40 [Suspect]
     Indication: DERMATITIS CONTACT
     Dosage: 40 MG IN EACH SIDE OF GLUTES
     Route: 030
     Dates: start: 20100628

REACTIONS (1)
  - PREGNANCY [None]
